FAERS Safety Report 14560065 (Version 1)
Quarter: 2018Q1

REPORT INFORMATION
  Report Type: Spontaneous
  Country: IT (occurrence: IT)
  Receive Date: 20180221
  Receipt Date: 20180221
  Transmission Date: 20180509
  Serious: Yes (Death)
  Sender: FDA-Public Use
  Company Number: IT-SUN PHARMACEUTICAL INDUSTRIES LTD-2018RR-164058

PATIENT
  Age: 39 Year
  Sex: Male

DRUGS (7)
  1. IRINOTECAN [Suspect]
     Active Substance: IRINOTECAN
     Indication: EWING^S SARCOMA
     Dosage: UNK
     Route: 042
     Dates: start: 20131016, end: 20140711
  2. DOCETAXEL. [Suspect]
     Active Substance: DOCETAXEL
     Indication: PRODUCT USED FOR UNKNOWN INDICATION
     Route: 065
  3. GEMCITABINE [Suspect]
     Active Substance: GEMCITABINE\GEMCITABINE HYDROCHLORIDE
     Indication: PRODUCT USED FOR UNKNOWN INDICATION
     Route: 065
  4. ETOPOSIDE. [Suspect]
     Active Substance: ETOPOSIDE
     Indication: PRODUCT USED FOR UNKNOWN INDICATION
     Route: 065
  5. CARBOPLATIN. [Suspect]
     Active Substance: CARBOPLATIN
     Indication: PRODUCT USED FOR UNKNOWN INDICATION
     Route: 065
  6. YONDELIS [Suspect]
     Active Substance: TRABECTEDIN
     Indication: EWING^S SARCOMA
     Dosage: 1 MG/M2, CYCLICAL
     Route: 042
     Dates: start: 20130918, end: 20140708
  7. DEXAMETHASONE. [Concomitant]
     Active Substance: DEXAMETHASONE
     Indication: PREMEDICATION
     Dosage: 20 MG/M2, UNK
     Route: 065

REACTIONS (6)
  - Cerebrovascular accident [Fatal]
  - Off label use [Fatal]
  - Transaminases increased [Fatal]
  - Diarrhoea [Fatal]
  - Haematotoxicity [Fatal]
  - Hepatotoxicity [Fatal]
